FAERS Safety Report 7539555-7 (Version None)
Quarter: 2011Q2

REPORT INFORMATION
  Report Type: 
  Country: None (occurrence: None)
  Receive Date: 20110609
  Receipt Date: 20110609
  Transmission Date: 20111010
  Serious: Yes (Life-Threatening, Hospitalization)
  Sender: FDA-Public Use
  Company Number: None

PATIENT
  Age: 51 Year
  Sex: Male
  Weight: 65.7716 kg

DRUGS (2)
  1. OSMOPREP [Suspect]
     Indication: COLONOSCOPY
     Dosage: 20 15 MINUTES PO
     Route: 048
     Dates: start: 20110520, end: 20110520
  2. OSMOPREP [Suspect]
     Dosage: 12 15 MINUTES PO
     Route: 048
     Dates: start: 20110520, end: 20110520

REACTIONS (3)
  - HAEMATEMESIS [None]
  - DRUG EFFECT DECREASED [None]
  - HYPOKALAEMIA [None]
